FAERS Safety Report 21270097 (Version 1)
Quarter: 2022Q3

REPORT INFORMATION
  Report Type: Spontaneous
  Country: US (occurrence: None)
  Receive Date: 20220829
  Receipt Date: 20220829
  Transmission Date: 20221026
  Serious: Yes (Life-Threatening, Hospitalization, Other)
  Sender: FDA-Public Use
  Company Number: None

PATIENT
  Age: 55 Year
  Sex: Male
  Weight: 76.5 kg

DRUGS (5)
  1. MARCAINE [Suspect]
     Active Substance: BUPIVACAINE HYDROCHLORIDE
  2. Augmentin BID for tooth infection [Concomitant]
  3. 5mg of Oxycodone for pain control [Concomitant]
  4. 600mg Ibuprophen BID [Concomitant]
  5. 1000mg Acetaminophen BID for pain inflammation due to tooth infection [Concomitant]

REACTIONS (3)
  - Generalised tonic-clonic seizure [None]
  - Injection related reaction [None]
  - Postictal state [None]

NARRATIVE: CASE EVENT DATE: 20220824
